FAERS Safety Report 18402652 (Version 2)
Quarter: 2021Q1

REPORT INFORMATION
  Report Type: Spontaneous
  Country: CA (occurrence: CA)
  Receive Date: 20201019
  Receipt Date: 20210223
  Transmission Date: 20210419
  Serious: Yes (Other)
  Sender: FDA-Public Use
  Company Number: CA-BAUSCH-BL-2020-029868

PATIENT
  Age: 53 Year
  Sex: Female

DRUGS (46)
  1. CEPHALEXIN. [Suspect]
     Active Substance: CEPHALEXIN
     Indication: VOMITING
     Route: 065
  2. CEPHALEXIN. [Suspect]
     Active Substance: CEPHALEXIN
     Indication: DIZZINESS
  3. GABAPENTIN. [Suspect]
     Active Substance: GABAPENTIN
     Indication: PRODUCT USED FOR UNKNOWN INDICATION
     Route: 065
  4. KETAMINE [Suspect]
     Active Substance: KETAMINE
     Indication: HALLUCINATION
     Route: 065
  5. NOVORAPID [Suspect]
     Active Substance: INSULIN ASPART
     Indication: TYPE 2 DIABETES MELLITUS
     Dosage: SOLUTION SUBCUTANEOUS
     Route: 065
  6. PREDNISONE. [Suspect]
     Active Substance: PREDNISONE
     Indication: PRODUCT USED FOR UNKNOWN INDICATION
     Route: 065
  7. SPIRIVA RESPIMAT [Suspect]
     Active Substance: TIOTROPIUM BROMIDE
     Indication: PRODUCT USED FOR UNKNOWN INDICATION
     Route: 065
  8. INDOMETHACIN SODIUM [Suspect]
     Active Substance: INDOMETHACIN SODIUM
     Indication: VOMITING
     Route: 065
  9. CEFUROXIME. [Suspect]
     Active Substance: CEFUROXIME
     Indication: DIARRHOEA
  10. CLOPIDOGREL [Suspect]
     Active Substance: CLOPIDOGREL BISULFATE
     Indication: ANTICOAGULANT THERAPY
     Route: 065
  11. FLOVENT [Suspect]
     Active Substance: FLUTICASONE PROPIONATE
     Indication: CHRONIC OBSTRUCTIVE PULMONARY DISEASE
     Route: 065
  12. NITROLINGUAL PUMPSPRAY [Suspect]
     Active Substance: NITROGLYCERIN
     Indication: OESOPHAGEAL SPASM
     Dosage: METERED DOSE PUMP
     Route: 065
  13. SALBUTAMOL [Suspect]
     Active Substance: ALBUTEROL
     Route: 065
  14. CEFUROXIME. [Suspect]
     Active Substance: CEFUROXIME
     Indication: FATIGUE
  15. FLOVENT [Suspect]
     Active Substance: FLUTICASONE PROPIONATE
     Indication: ASTHMA
     Route: 065
  16. AMITRIPTYLINE [Suspect]
     Active Substance: AMITRIPTYLINE
     Indication: DEPRESSION
     Route: 065
  17. APO SULFATRIM [Suspect]
     Active Substance: SULFAMETHOXAZOLE\TRIMETHOPRIM
     Indication: STOMATITIS
     Route: 065
  18. BREO ELLIPTA [Suspect]
     Active Substance: FLUTICASONE FUROATE\VILANTEROL TRIFENATATE
     Indication: PRODUCT USED FOR UNKNOWN INDICATION
     Route: 065
  19. CYMBALTA [Suspect]
     Active Substance: DULOXETINE HYDROCHLORIDE
     Indication: DEPRESSION
     Route: 065
  20. CYMBALTA [Suspect]
     Active Substance: DULOXETINE HYDROCHLORIDE
     Indication: ANXIETY
     Route: 065
  21. GRAVOL [Suspect]
     Active Substance: DIMENHYDRINATE
     Indication: ANXIETY
     Route: 065
  22. INDOMETHACIN AGILA [Suspect]
     Active Substance: INDOMETHACIN SODIUM
     Indication: ABDOMINAL PAIN UPPER
  23. SENOKOT [Suspect]
     Active Substance: SENNOSIDES
     Indication: ABDOMINAL PAIN
     Route: 065
  24. INDOMETHACIN SODIUM [Suspect]
     Active Substance: INDOMETHACIN SODIUM
     Indication: VISION BLURRED
  25. WELLBUTRIN [Suspect]
     Active Substance: BUPROPION HYDROCHLORIDE
     Indication: URTICARIA
     Dosage: EXTENDED RELEASE
     Route: 065
  26. CEFUROXIME. [Suspect]
     Active Substance: CEFUROXIME
     Indication: MALAISE
     Route: 065
  27. CIPROFLOXACIN. [Suspect]
     Active Substance: CIPROFLOXACIN
     Indication: URTICARIA
     Route: 065
  28. MOXIFLOXACIN. [Suspect]
     Active Substance: MOXIFLOXACIN
     Indication: RASH
     Route: 065
  29. POTASSIUM [Suspect]
     Active Substance: POTASSIUM
     Indication: PRODUCT USED FOR UNKNOWN INDICATION
     Route: 065
  30. TYLENOL WITH CODEINE [Suspect]
     Active Substance: ACETAMINOPHEN\CODEINE PHOSPHATE
     Indication: PRURITUS
     Route: 065
  31. INDOMETHACIN SODIUM [Suspect]
     Active Substance: INDOMETHACIN SODIUM
     Indication: ABDOMINAL PAIN UPPER
  32. CELEBREX [Suspect]
     Active Substance: CELECOXIB
     Indication: ABDOMINAL PAIN UPPER
     Route: 065
  33. INDOMETHACIN AGILA [Suspect]
     Active Substance: INDOMETHACIN SODIUM
     Indication: VISION BLURRED
  34. NAPROXEN SODIUM. [Suspect]
     Active Substance: NAPROXEN SODIUM
     Indication: PRURITUS
     Route: 065
  35. VIOXX [Suspect]
     Active Substance: ROFECOXIB
     Indication: URTICARIA
     Route: 065
  36. SALBUTAMOL [Suspect]
     Active Substance: ALBUTEROL
     Indication: PRODUCT USED FOR UNKNOWN INDICATION
     Route: 065
  37. APO?FERROUS GLUCONATE [Suspect]
     Active Substance: FERROUS GLUCONATE
     Indication: IRON DEFICIENCY
     Route: 065
  38. ATROVENT [Suspect]
     Active Substance: IPRATROPIUM BROMIDE
     Indication: PRODUCT USED FOR UNKNOWN INDICATION
     Dosage: METERED DOSE (AEROSOL)
     Route: 065
  39. FOSAVANCE [Suspect]
     Active Substance: ALENDRONATE SODIUM\CHOLECALCIFEROL
     Indication: OSTEOPOROSIS POSTMENOPAUSAL
     Route: 065
  40. INDOMETHACIN AGILA [Suspect]
     Active Substance: INDOMETHACIN SODIUM
     Indication: VOMITING
     Route: 065
  41. NOVO?FURANTOIN [Suspect]
     Active Substance: NITROFURANTOIN
     Indication: CYSTITIS
     Route: 065
  42. PENICILLIN [Suspect]
     Active Substance: PENICILLIN
     Indication: PRODUCT USED FOR UNKNOWN INDICATION
     Route: 065
  43. PERINDOPRIL [Suspect]
     Active Substance: PERINDOPRIL
     Indication: BLOOD PRESSURE MEASUREMENT
     Route: 065
  44. APO?FUROSEMIDE [Suspect]
     Active Substance: FUROSEMIDE
     Indication: FLUID RETENTION
     Route: 065
  45. CELEBREX [Suspect]
     Active Substance: CELECOXIB
     Indication: OESOPHAGEAL PAIN
     Route: 065
  46. CEPHALEXIN. [Suspect]
     Active Substance: CEPHALEXIN
     Indication: MALAISE

REACTIONS (30)
  - Abdominal pain upper [Unknown]
  - Depression [Unknown]
  - Hyperhidrosis [Unknown]
  - Stomatitis [Unknown]
  - Urticaria [Unknown]
  - Abdominal pain [Unknown]
  - Anxiety [Unknown]
  - Dizziness [Unknown]
  - Diarrhoea [Unknown]
  - Fluid retention [Unknown]
  - Lymphoedema [Unknown]
  - Myocardial infarction [Unknown]
  - Sleep apnoea syndrome [Unknown]
  - Agitation [Unknown]
  - Cystitis [Unknown]
  - Fatigue [Unknown]
  - Malaise [Unknown]
  - Pruritus [Unknown]
  - Tinnitus [Unknown]
  - Feeling abnormal [Unknown]
  - Vomiting [Unknown]
  - Bronchitis [Unknown]
  - Hallucination [Unknown]
  - Migraine [Unknown]
  - Oesophageal pain [Unknown]
  - Vision blurred [Unknown]
  - Fibromyalgia [Unknown]
  - Oesophageal spasm [Unknown]
  - Pneumonia [Unknown]
  - Rash [Unknown]
